FAERS Safety Report 5108388-3 (Version None)
Quarter: 2006Q3

REPORT INFORMATION
  Report Type: 
  Country: None (occurrence: None)
  Receive Date: 20060731
  Receipt Date: 20060607
  Transmission Date: 20061208
  Serious: No
  Sender: FDA-Public Use
  Company Number: 2006PV015216

PATIENT
  Age: 65 Year
  Sex: Female
  Weight: 127.0072 kg

DRUGS (11)
  1. BYETTA [Suspect]
     Indication: DIABETES MELLITUS NON-INSULIN-DEPENDENT
     Dosage: 5 MCG BID SC
     Route: 058
     Dates: start: 20060605
  2. METFORMIN HCL [Concomitant]
  3. GLIMEPIRIDE [Concomitant]
  4. MAGNESIUM [Concomitant]
  5. MAGNESIUM [Concomitant]
  6. CENTRUM [Concomitant]
  7. ASCORBIC ACID [Concomitant]
  8. DIOVAN [Concomitant]
  9. VITAMIN B-12 [Concomitant]
  10. ACETAMINOPHEN AND CODEINE PHOSPHATE [Concomitant]
  11. HYDROCHLOROTHIAZIDE [Concomitant]

REACTIONS (5)
  - ABDOMINAL PAIN UPPER [None]
  - GASTROOESOPHAGEAL REFLUX DISEASE [None]
  - NAUSEA [None]
  - SCIATICA [None]
  - STOMACH DISCOMFORT [None]
